FAERS Safety Report 5774596-1 (Version None)
Quarter: 2008Q2

REPORT INFORMATION
  Report Type: 
  Country: None (occurrence: None)
  Receive Date: 20080616
  Receipt Date: 20080611
  Transmission Date: 20081010
  Serious: Yes (Death)
  Sender: FDA-Public Use
  Company Number: JP-ABBOTT-08P-087-0456583-00

PATIENT
  Sex: Male

DRUGS (6)
  1. KALETRA [Suspect]
     Indication: HIV INFECTION
     Dosage: 8 CAPSULES, DAILY
     Route: 048
     Dates: end: 20071201
  2. LAMIVUDINE [Concomitant]
     Indication: HIV INFECTION
     Route: 048
     Dates: end: 20071201
  3. ABACAVIR [Concomitant]
     Indication: HIV INFECTION
     Route: 048
     Dates: end: 20071201
  4. EFAVIRENZ [Concomitant]
     Indication: HIV INFECTION
     Dosage: 600 MG, DAILY
     Route: 048
     Dates: end: 20071201
  5. AZITHROMYCIN [Concomitant]
     Indication: MYCOBACTERIA TEST
     Dosage: 1200 MG, DAILY, ONCE PER WEEK
     Route: 048
     Dates: end: 20071201
  6. BACTRIM [Concomitant]
     Indication: ANTIFUNGAL PROPHYLAXIS
     Dosage: 1 GRAM, DAILY, 3 TIMES PER WEEK
     Route: 048
     Dates: end: 20071201

REACTIONS (1)
  - CYTOMEGALOVIRUS INFECTION [None]
